FAERS Safety Report 9079811 (Version 2)
Quarter: 2013Q1

REPORT INFORMATION
  Report Type: Spontaneous
  Country: PL (occurrence: PL)
  Receive Date: 20130215
  Receipt Date: 20130220
  Transmission Date: 20140127
  Serious: Yes (Other)
  Sender: FDA-Public Use
  Company Number: PL-GLAXOSMITHKLINE-B0867077A

PATIENT
  Age: 3 Year
  Sex: Female

DRUGS (1)
  1. ZINNAT 250 MG N [Suspect]
     Indication: PRODUCT USED FOR UNKNOWN INDICATION
     Route: 065
     Dates: start: 20130207

REACTIONS (2)
  - Convulsion [Unknown]
  - Product quality issue [Unknown]
